FAERS Safety Report 23654819 (Version 2)
Quarter: 2024Q2

REPORT INFORMATION
  Report Type: Spontaneous
  Country: US (occurrence: US)
  Receive Date: 20240320
  Receipt Date: 20240606
  Transmission Date: 20240716
  Serious: No
  Sender: FDA-Public Use
  Company Number: US-MYLANLABS-2024M1022363

PATIENT
  Sex: Male
  Weight: 78.93 kg

DRUGS (1)
  1. TYRVAYA [Suspect]
     Active Substance: VARENICLINE TARTRATE
     Indication: Dry eye
     Dosage: 0.03 MILLIGRAM, BID (ONE SPRAY TO EACH NOSTRIL TWICE DAILY)
     Route: 045

REACTIONS (4)
  - Oropharyngeal pain [Unknown]
  - Productive cough [Unknown]
  - Throat irritation [Unknown]
  - Product delivery mechanism issue [Unknown]
